FAERS Safety Report 9826966 (Version 1)
Quarter: 2014Q1

REPORT INFORMATION
  Report Type: Spontaneous
  Country: US (occurrence: US)
  Receive Date: 20140117
  Receipt Date: 20140117
  Transmission Date: 20141002
  Serious: No
  Sender: FDA-Public Use
  Company Number: US-GLAXOSMITHKLINE-A1022350A

PATIENT
  Sex: 0

DRUGS (2)
  1. PROMACTA [Suspect]
     Indication: MYELODYSPLASTIC SYNDROME
     Route: 048
  2. NO CONCURRENT MEDICATION [Concomitant]

REACTIONS (1)
  - Spinal pain [Unknown]
